FAERS Safety Report 9997371 (Version 1)
Quarter: 2014Q1

REPORT INFORMATION
  Report Type: Spontaneous
  Country: CH (occurrence: CH)
  Receive Date: 20140311
  Receipt Date: 20140311
  Transmission Date: 20141002
  Serious: Yes (Other)
  Sender: FDA-Public Use
  Company Number: CH-TEVA-465798ISR

PATIENT
  Sex: Male

DRUGS (1)
  1. TAMSULOSIN MEPHA RETARD [Suspect]

REACTIONS (4)
  - Retinal disorder [Unknown]
  - Retinal neovascularisation [Unknown]
  - Vision blurred [Unknown]
  - Product substitution issue [Unknown]
